FAERS Safety Report 14431670 (Version 1)
Quarter: 2018Q1

REPORT INFORMATION
  Report Type: Spontaneous
  Country: US (occurrence: US)
  Receive Date: 20180124
  Receipt Date: 20180124
  Transmission Date: 20180509
  Serious: No
  Sender: FDA-Public Use
  Company Number: US-PFIZER INC-2018030502

PATIENT
  Age: 71 Year
  Sex: Female

DRUGS (4)
  1. INDOCIN [Suspect]
     Active Substance: INDOMETHACIN
     Dosage: UNK
  2. DILANTIN [Suspect]
     Active Substance: PHENYTOIN
     Dosage: UNK
  3. MONISTAT [Suspect]
     Active Substance: MICONAZOLE NITRATE
     Dosage: UNK
  4. MOTRIN [Suspect]
     Active Substance: IBUPROFEN
     Dosage: UNK

REACTIONS (2)
  - Rash [Unknown]
  - Drug hypersensitivity [Unknown]
